FAERS Safety Report 5156629-9 (Version None)
Quarter: 2006Q4

REPORT INFORMATION
  Report Type: 
  Country: None (occurrence: None)
  Receive Date: 20061115
  Receipt Date: 20061102
  Transmission Date: 20070319
  Serious: Yes (Disabling)
  Sender: FDA-Public Use
  Company Number: STI-2006-00672

PATIENT
  Age: 51 Year
  Sex: Female

DRUGS (5)
  1. 574A UREA 40% CREAM (UREA) (UREA) (40 %, CREAM) [Suspect]
     Indication: DRY SKIN
     Dosage: TOPICAL
     Route: 061
     Dates: start: 20060901, end: 20060901
  2. BUMEX [Concomitant]
  3. UNSPECIFIED MEDICATION (ANTI-DIABETICS) [Concomitant]
  4. UNSPECIFIED MEDICATION (ANTIHYPERTENSIVES) [Concomitant]
  5. UNSPECIFIED MEDICATION (OTHER RESPIRATORY SYSTEM PRODUCTS) [Concomitant]

REACTIONS (7)
  - ACTIVITIES OF DAILY LIVING IMPAIRED [None]
  - CAPILLARY DISORDER [None]
  - CHEMICAL BURN OF SKIN [None]
  - GAIT DISTURBANCE [None]
  - MOBILITY DECREASED [None]
  - PALLOR [None]
  - SKIN DISCOLOURATION [None]
